FAERS Safety Report 14163625 (Version 1)
Quarter: 2017Q4

REPORT INFORMATION
  Report Type: Report from Study
  Country: ES (occurrence: ES)
  Receive Date: 20171107
  Receipt Date: 20171107
  Transmission Date: 20180321
  Serious: Yes (Other)
  Sender: FDA-Public Use
  Company Number: ES-ROCHE-553136

PATIENT

DRUGS (2)
  1. PEG-INTERFERON ALFA 2A [Suspect]
     Active Substance: PEGINTERFERON ALFA-2A
     Indication: CHRONIC HEPATITIS C
     Route: 058
  2. RIBAVIRIN. [Suspect]
     Active Substance: RIBAVIRIN
     Indication: CHRONIC HEPATITIS C
     Dosage: A DOSE OF 1000 MG/D (IF BODY WEIGHT { 75 KG) OR 1200 MG/D (IF BODY WEIGHT } 75 KG)
     Route: 048

REACTIONS (2)
  - Anaemia [Unknown]
  - Mitochondrial toxicity [Unknown]
